FAERS Safety Report 10634017 (Version 3)
Quarter: 2015Q1

REPORT INFORMATION
  Report Type: Report from Study
  Country: US (occurrence: US)
  Receive Date: 20141205
  Receipt Date: 20150107
  Transmission Date: 20150720
  Serious: Yes (Death, Hospitalization, Other)
  Sender: FDA-Public Use
  Company Number: US-ALEXION PHARMACEUTICALS INC-A201404536

PATIENT

DRUGS (1)
  1. SOLIRIS [Suspect]
     Active Substance: ECULIZUMAB
     Indication: PRODUCT USED FOR UNKNOWN INDICATION
     Dosage: UNK
     Route: 042

REACTIONS (6)
  - Immunosuppression [Unknown]
  - Haemoglobin decreased [Not Recovered/Not Resolved]
  - Death [Fatal]
  - Respiratory distress [Not Recovered/Not Resolved]
  - Fungal infection [Not Recovered/Not Resolved]
  - Platelet disorder [Recovering/Resolving]

NARRATIVE: CASE EVENT DATE: 20141204
